FAERS Safety Report 4494312-3 (Version None)
Quarter: 2004Q4

REPORT INFORMATION
  Report Type: 
  Country: None (occurrence: None)
  Receive Date: 20041105
  Receipt Date: 20041013
  Transmission Date: 20050328
  Serious: Yes (Disabling)
  Sender: FDA-Public Use
  Company Number: JP-GLAXOSMITHKLINE-B0348458A

PATIENT
  Age: 87 Year
  Sex: Female
  Weight: 38 kg

DRUGS (7)
  1. VALTREX [Suspect]
     Indication: HERPES ZOSTER
     Dosage: 1000MG THREE TIMES PER DAY
     Route: 048
     Dates: start: 20040929, end: 20041008
  2. UNKNOWN [Concomitant]
     Dosage: 5MG PER DAY
     Route: 048
  3. LASIX [Concomitant]
     Dosage: 20MG PER DAY
     Route: 048
  4. SOLANAX [Concomitant]
     Dosage: .4MG PER DAY
     Route: 048
  5. SG [Concomitant]
     Indication: PAIN
     Route: 048
  6. HERBESSER R [Concomitant]
     Dosage: 100MG PER DAY
     Route: 048
  7. PURSENNID [Concomitant]
     Dosage: 1TAB PER DAY
     Route: 048

REACTIONS (9)
  - ABDOMINAL PAIN [None]
  - BLOOD CREATININE INCREASED [None]
  - BLOOD UREA INCREASED [None]
  - BLOOD URIC ACID INCREASED [None]
  - DIARRHOEA [None]
  - HEADACHE [None]
  - NAUSEA [None]
  - RENAL DISORDER [None]
  - VOMITING [None]
